FAERS Safety Report 20249844 (Version 1)
Quarter: 2021Q4

REPORT INFORMATION
  Report Type: Spontaneous
  Country: US (occurrence: US)
  Receive Date: 20211229
  Receipt Date: 20211229
  Transmission Date: 20220303
  Serious: Yes (Disabling)
  Sender: FDA-Public Use
  Company Number: US-009507513-2112USA008347

PATIENT

DRUGS (1)
  1. PRINIVIL [Suspect]
     Active Substance: LISINOPRIL
     Indication: Hypertension
     Dosage: UNK

REACTIONS (5)
  - Mobility decreased [Unknown]
  - Toxicity to various agents [Unknown]
  - Pain [Unknown]
  - Malaise [Unknown]
  - Psychiatric symptom [Unknown]
